FAERS Safety Report 4375838-X (Version None)
Quarter: 2004Q2

REPORT INFORMATION
  Report Type: 
  Country: None (occurrence: None)
  Receive Date: 20040607
  Receipt Date: 20040524
  Transmission Date: 20050107
  Serious: Yes (Death, Other)
  Sender: FDA-Public Use
  Company Number: JP-JNJFOC-20040304426

PATIENT
  Age: 68 Year
  Sex: Male

DRUGS (19)
  1. LEUSTATIN [Suspect]
     Indication: HAIRY CELL LEUKAEMIA
     Dosage: 4.35 MG, IN 1 DAY, INTRAVENOUS DRIP; 4.35 MG, IN 1 DAY, INTRAVENOUS DRIP
     Route: 041
     Dates: start: 20031024, end: 20031030
  2. LEUSTATIN [Suspect]
     Indication: HAIRY CELL LEUKAEMIA
     Dosage: 4.35 MG, IN 1 DAY, INTRAVENOUS DRIP; 4.35 MG, IN 1 DAY, INTRAVENOUS DRIP
     Route: 041
     Dates: start: 20040302, end: 20040306
  3. BACTRIM [Suspect]
     Indication: INFECTION PROPHYLAXIS
     Dosage: 1 G, 1 IN 2 DAY, ORAL
     Route: 048
     Dates: start: 20031023, end: 20040305
  4. DIGOXIN [Concomitant]
  5. AGENTS FOR TREATMENT OF GOUT (ANTIGOUT PREPARATIONS) [Concomitant]
  6. FLUCONAZOLE [Concomitant]
  7. DOMEPERIDONE (DOMPERIDONE) [Concomitant]
  8. BROMHEXINE HYDROCHLORIDE (BROMHEXINE HYDROCHLORIDE) [Concomitant]
  9. ALLOPURINOL [Concomitant]
  10. BROTIZOLAM (BROTIZOLAM) [Concomitant]
  11. SODIUM BICARBONATE IN PLASTIC CONTAINER [Concomitant]
  12. FUROSEMIDE [Concomitant]
  13. SULPYRINE (METAMIZOLE SODIUM) [Concomitant]
  14. MOSAPRIDE CITRATE (MOSAPRIDE CITRATE) [Concomitant]
  15. MAGNESIUM OXIDE (MAGNESIUM OXIDE) [Concomitant]
  16. ACETAZOLAMIDE SODIUM (ACETAZOLAMIDE SODIUM) [Concomitant]
  17. SODIUM CHLORIDE 10% (SODIUM CHLORIDE) [Concomitant]
  18. PENTAZOCINE LACTATE [Concomitant]
  19. METHYLPREDNISOLONE [Concomitant]

REACTIONS (15)
  - ABDOMINAL PAIN UPPER [None]
  - ANURIA [None]
  - ASCITES [None]
  - ASPARTATE AMINOTRANSFERASE INCREASED [None]
  - BLOOD ALKALINE PHOSPHATASE INCREASED [None]
  - BLOOD BILIRUBIN INCREASED [None]
  - BLOOD LACTATE DEHYDROGENASE INCREASED [None]
  - DEPRESSED LEVEL OF CONSCIOUSNESS [None]
  - METABOLIC ACIDOSIS [None]
  - PAIN EXACERBATED [None]
  - RENAL TUBULAR ACIDOSIS [None]
  - SPLENIC HAEMORRHAGE [None]
  - SPLENOMEGALY [None]
  - THIRST [None]
  - WHITE BLOOD CELL COUNT INCREASED [None]
